FAERS Safety Report 21741908 (Version 1)
Quarter: 2022Q4

REPORT INFORMATION
  Report Type: Spontaneous
  Country: SE (occurrence: SE)
  Receive Date: 20221216
  Receipt Date: 20221216
  Transmission Date: 20230112
  Serious: Yes (Life-Threatening, Hospitalization, Other)
  Sender: FDA-Public Use
  Company Number: SE-TEVA-2022-SE-2834848

PATIENT
  Age: 1 Year
  Sex: Female

DRUGS (2)
  1. ALBUTEROL SULFATE [Suspect]
     Active Substance: ALBUTEROL SULFATE
     Indication: Obstructive airways disorder
     Route: 055
     Dates: start: 20210518, end: 20221122
  2. ALBUTEROL SULFATE [Suspect]
     Active Substance: ALBUTEROL SULFATE
     Indication: Asthma

REACTIONS (9)
  - Dyspnoea [Not Recovered/Not Resolved]
  - Product prescribing issue [Unknown]
  - Product dispensing error [Unknown]
  - Device dispensing error [Unknown]
  - Drug administered in wrong device [Unknown]
  - Drug dose omission by device [Unknown]
  - Cough [Not Recovered/Not Resolved]
  - Nasopharyngitis [Not Recovered/Not Resolved]
  - Illness [Unknown]

NARRATIVE: CASE EVENT DATE: 20210518
